FAERS Safety Report 16033320 (Version 2)
Quarter: 2019Q1

REPORT INFORMATION
  Report Type: Spontaneous
  Country: DE (occurrence: DE)
  Receive Date: 20190305
  Receipt Date: 20190330
  Transmission Date: 20190418
  Serious: Yes (Other)
  Sender: FDA-Public Use
  Company Number: DE-AUROBINDO-AUR-APL-2019-011416

PATIENT

DRUGS (3)
  1. CEFUROXIME. [Suspect]
     Active Substance: CEFUROXIME
     Indication: PRODUCT USED FOR UNKNOWN INDICATION
     Dosage: UNK
     Route: 065
  2. ERYTHROMYCIN. [Suspect]
     Active Substance: ERYTHROMYCIN
     Indication: PRODUCT USED FOR UNKNOWN INDICATION
     Dosage: UNK
     Route: 065
  3. ILARIS [Suspect]
     Active Substance: CANAKINUMAB
     Indication: STILL^S DISEASE
     Dosage: 75 MILLIGRAM, 4 WEEK, 75 MG, Q4W
     Route: 065
     Dates: start: 20161104, end: 20161104

REACTIONS (8)
  - Skin swelling [Unknown]
  - Vomiting [Unknown]
  - Bronchitis chronic [Not Recovered/Not Resolved]
  - Pneumonia [Recovered/Resolved]
  - Anaphylactic reaction [Recovered/Resolved]
  - Hyperglycaemia [Recovered/Resolved]
  - Lymphopenia [Unknown]
  - Erythema [Unknown]

NARRATIVE: CASE EVENT DATE: 20170112
